FAERS Safety Report 9813205 (Version 4)
Quarter: 2016Q1

REPORT INFORMATION
  Report Type: Report from Study
  Country: US (occurrence: US)
  Receive Date: 20140113
  Receipt Date: 20160324
  Transmission Date: 20160526
  Serious: Yes (Hospitalization, Other)
  Sender: FDA-Public Use
  Company Number: US-BAYER-2014-001436

PATIENT
  Age: 65 Year
  Sex: Female

DRUGS (13)
  1. BETASERON [Suspect]
     Active Substance: INTERFERON BETA-1B
     Indication: SECONDARY PROGRESSIVE MULTIPLE SCLEROSIS
     Dosage: 8 MIU, QOD
     Route: 058
  2. POTASSIUM [Concomitant]
     Active Substance: POTASSIUM
     Dosage: 99 MG, TIW
  3. BETASERON [Suspect]
     Active Substance: INTERFERON BETA-1B
     Indication: SECONDARY PROGRESSIVE MULTIPLE SCLEROSIS
     Dosage: 8 MIU, QOD
     Route: 058
  4. BETASERON [Suspect]
     Active Substance: INTERFERON BETA-1B
     Indication: SECONDARY PROGRESSIVE MULTIPLE SCLEROSIS
     Dosage: 6 MIU, QOD
     Route: 058
  5. BETASERON [Suspect]
     Active Substance: INTERFERON BETA-1B
     Indication: SECONDARY PROGRESSIVE MULTIPLE SCLEROSIS
     Dosage: 4 MIU, UNK
     Route: 058
     Dates: start: 20050722
  6. BETASERON [Suspect]
     Active Substance: INTERFERON BETA-1B
     Indication: SECONDARY PROGRESSIVE MULTIPLE SCLEROSIS
     Dosage: UNK
     Dates: start: 19990415, end: 20041001
  7. VITAMIN D [Concomitant]
     Active Substance: CHOLECALCIFEROL
     Dosage: 50000 IU, OW
  8. TRIMETHOPRIM. [Concomitant]
     Active Substance: TRIMETHOPRIM
     Dosage: 100 MG, 3 TIMES/WEEK
  9. MAGNESIUM [Concomitant]
     Active Substance: MAGNESIUM
     Dosage: UNK UNK, TIW
  10. PROVIGIL [Concomitant]
     Active Substance: MODAFINIL
     Dosage: 100 MG, QD
  11. BACLOFEN. [Concomitant]
     Active Substance: BACLOFEN
     Dosage: 20 MG, TID
  12. NORTRIPTYLINE [Concomitant]
     Active Substance: NORTRIPTYLINE
     Dosage: 20 MG, QD
  13. VITAMIN D [Concomitant]
     Active Substance: CHOLECALCIFEROL
     Dosage: 3000 MG, QD

REACTIONS (19)
  - Peripheral swelling [Recovering/Resolving]
  - Erythema [Recovering/Resolving]
  - Cerebrovascular accident [Recovered/Resolved]
  - Pain in extremity [Recovering/Resolving]
  - Asthenia [None]
  - Weight decreased [Recovered/Resolved]
  - Muscle spasms [Not Recovered/Not Resolved]
  - Localised infection [Recovering/Resolving]
  - Feeling cold [Not Recovered/Not Resolved]
  - Intracranial aneurysm [Recovered/Resolved]
  - Injection site erythema [Not Recovered/Not Resolved]
  - Hypertension [None]
  - Multiple sclerosis [Unknown]
  - Cardiac arrest [Recovered/Resolved]
  - Thrombosis [Recovered/Resolved]
  - Decreased appetite [Recovered/Resolved]
  - Muscular weakness [Not Recovered/Not Resolved]
  - Haemorrhagic stroke [Not Recovered/Not Resolved]
  - Asthma [Not Recovered/Not Resolved]

NARRATIVE: CASE EVENT DATE: 2011
